FAERS Safety Report 9353742 (Version 1)
Quarter: 2013Q2

REPORT INFORMATION
  Report Type: Spontaneous
  Country: US (occurrence: US)
  Receive Date: 20130618
  Receipt Date: 20130618
  Transmission Date: 20140414
  Serious: No
  Sender: FDA-Public Use
  Company Number: US-BAYER-2013-073439

PATIENT
  Age: 93 Year
  Sex: Female

DRUGS (3)
  1. ULTRAVIST [Suspect]
     Indication: COMPUTERISED TOMOGRAM THORAX
     Dosage: 100 ML, ONCE
     Dates: start: 20130613, end: 20130613
  2. ULTRAVIST [Suspect]
     Indication: COMPUTERISED TOMOGRAM ABDOMEN
  3. ULTRAVIST [Suspect]
     Indication: WEIGHT DECREASED

REACTIONS (1)
  - Urticaria [None]
